FAERS Safety Report 15823508 (Version 1)
Quarter: 2019Q1

REPORT INFORMATION
  Report Type: Spontaneous
  Country: GR (occurrence: GR)
  Receive Date: 20190114
  Receipt Date: 20190114
  Transmission Date: 20190417
  Serious: Yes (Hospitalization)
  Sender: FDA-Public Use
  Company Number: PHHY2019GR004044

PATIENT
  Age: 4 Year
  Sex: Male

DRUGS (2)
  1. AMOXICILLIN+CLAVULANIC ACID [Suspect]
     Active Substance: AMOXICILLIN\CLAVULANIC ACID
     Indication: DRUG PROVOCATION TEST
  2. AMOXICILLIN+CLAVULANIC ACID [Suspect]
     Active Substance: AMOXICILLIN\CLAVULANIC ACID
     Indication: URETHRAL REPAIR
     Dosage: UNK
     Route: 042

REACTIONS (9)
  - Pyrexia [Recovered/Resolved]
  - Rash maculo-papular [Recovered/Resolved]
  - Rash macular [Recovered/Resolved]
  - Upper respiratory tract infection [Recovered/Resolved]
  - Rhonchi [Recovered/Resolved]
  - Skin hyperpigmentation [Recovered/Resolved]
  - Cough [Recovered/Resolved]
  - Pericardial effusion [Recovered/Resolved]
  - Anaphylactic reaction [Recovered/Resolved]
